FAERS Safety Report 19508272 (Version 9)
Quarter: 2024Q4

REPORT INFORMATION
  Report Type: Spontaneous
  Country: PL (occurrence: PL)
  Receive Date: 20210708
  Receipt Date: 20241217
  Transmission Date: 20250115
  Serious: Yes (Hospitalization, Other)
  Sender: BOEHRINGER INGELHEIM
  Company Number: PL-002147023-NVSC2021PL140813

PATIENT
  Age: 62 Year
  Sex: Male
  Weight: 98 kg

DRUGS (30)
  1. LINAGLIPTIN [Suspect]
     Active Substance: LINAGLIPTIN
     Indication: Product used for unknown indication
  2. MICARDIS [Suspect]
     Active Substance: TELMISARTAN
     Indication: Product used for unknown indication
     Route: 065
  3. HYDROCHLOROTHIAZIDE [Suspect]
     Active Substance: HYDROCHLOROTHIAZIDE
     Indication: Product used for unknown indication
     Route: 065
  4. ASPIRIN [Suspect]
     Active Substance: ASPIRIN
     Indication: Carotid arteriosclerosis
  5. ASPIRIN [Suspect]
     Active Substance: ASPIRIN
     Indication: Postoperative care
  6. ASPIRIN [Suspect]
     Active Substance: ASPIRIN
     Indication: Hypertension
  7. ASPIRIN [Suspect]
     Active Substance: ASPIRIN
     Indication: Coronary artery bypass
  8. AMLODIPINE\RAMIPRIL [Suspect]
     Active Substance: AMLODIPINE\RAMIPRIL
     Indication: Cardiac failure
  9. AMLODIPINE\RAMIPRIL [Suspect]
     Active Substance: AMLODIPINE\RAMIPRIL
     Indication: Coronary artery disease
  10. BISOPROLOL FUMARATE [Suspect]
     Active Substance: BISOPROLOL FUMARATE
     Indication: Coronary artery disease
  11. BISOPROLOL FUMARATE [Suspect]
     Active Substance: BISOPROLOL FUMARATE
     Indication: Heart failure with reduced ejection fraction
  12. CLOPIDOGREL HYDROCHLORIDE [Suspect]
     Active Substance: CLOPIDOGREL HYDROCHLORIDE
     Indication: Postoperative care
  13. CARVEDILOL [Suspect]
     Active Substance: CARVEDILOL
     Indication: Product used for unknown indication
  14. CARVEDILOL [Suspect]
     Active Substance: CARVEDILOL
  15. ESOMEPRAZOLE MAGNESIUM [Suspect]
     Active Substance: ESOMEPRAZOLE MAGNESIUM
     Indication: Antiplatelet therapy
     Dosage: GASTRO-RESISTANT TABLET
  16. ESOMEPRAZOLE MAGNESIUM [Suspect]
     Active Substance: ESOMEPRAZOLE MAGNESIUM
     Indication: Renal failure
  17. FENOBIBRATE [Suspect]
     Active Substance: FENOFIBRATE
     Indication: Product used for unknown indication
  18. FLUTICASONE PROPIONATE\SALMETEROL XINAFOATE [Suspect]
     Active Substance: FLUTICASONE PROPIONATE\SALMETEROL XINAFOATE
     Indication: Product used for unknown indication
     Dosage: 2 DF (250 ?G +50 UG) INHALATION
  19. METFORMIN [Suspect]
     Active Substance: METFORMIN HYDROCHLORIDE
     Indication: Product used for unknown indication
  20. PANTOPRAZOLE [Suspect]
     Active Substance: PANTOPRAZOLE
     Indication: Helicobacter gastritis
  21. PANTOPRAZOLE [Suspect]
     Active Substance: PANTOPRAZOLE
  22. ROSUVASTATIN [Suspect]
     Active Substance: ROSUVASTATIN
     Indication: Hypertension
  23. ROSUVASTATIN [Suspect]
     Active Substance: ROSUVASTATIN
     Indication: Carotid arteriosclerosis
  24. RAMIPRIL [Suspect]
     Active Substance: RAMIPRIL
     Indication: Coronary artery disease
  25. RAMIPRIL [Suspect]
     Active Substance: RAMIPRIL
     Indication: Heart failure with reduced ejection fraction
  26. TELMISARTAN [Suspect]
     Active Substance: TELMISARTAN
     Indication: Product used for unknown indication
  27. TRIMETAZIDINE [Suspect]
     Active Substance: TRIMETAZIDINE
     Indication: Product used for unknown indication
  28. TRIMETAZIDINE [Suspect]
     Active Substance: TRIMETAZIDINE
  29. ESOMEPRAZOLE SODIUM [Concomitant]
     Active Substance: ESOMEPRAZOLE SODIUM
     Indication: Postoperative care
  30. ESOMEPRAZOLE SODIUM [Concomitant]
     Active Substance: ESOMEPRAZOLE SODIUM
     Indication: Renal failure

REACTIONS (80)
  - Aortic valve incompetence [Unknown]
  - Palpitations [Unknown]
  - Mitral valve incompetence [Unknown]
  - Heart failure with reduced ejection fraction [Unknown]
  - Carotid arteriosclerosis [Unknown]
  - Tricuspid valve incompetence [Unknown]
  - Systolic dysfunction [Unknown]
  - Aortic valve incompetence [Unknown]
  - Carotid artery stenosis [Unknown]
  - Mitral valve incompetence [Unknown]
  - Diastolic dysfunction [Unknown]
  - Pericardial effusion [Unknown]
  - Mitral valve incompetence [Unknown]
  - Oedema peripheral [Unknown]
  - Hepatojugular reflux [Unknown]
  - Tricuspid valve incompetence [Unknown]
  - Left ventricular hypertrophy [Unknown]
  - Carotid arteriosclerosis [Unknown]
  - Asthenia [Unknown]
  - Pericardial effusion [Unknown]
  - Palpitations [Unknown]
  - Dyspnoea at rest [Unknown]
  - Tricuspid valve incompetence [Unknown]
  - Oedema peripheral [Unknown]
  - Helicobacter gastritis [Unknown]
  - Occult blood [Unknown]
  - Acute kidney injury [Unknown]
  - Occult blood [Unknown]
  - Angiopathy [Unknown]
  - Angiopathy [Unknown]
  - Helicobacter gastritis [Unknown]
  - Coronary artery disease [Unknown]
  - Helicobacter gastritis [Unknown]
  - Hyperlipidaemia [Unknown]
  - Electrocardiogram Q wave abnormal [Unknown]
  - Ventricular hypokinesia [Unknown]
  - Ventricular hypokinesia [Unknown]
  - Chronic kidney disease [Unknown]
  - Acute myocardial infarction [Unknown]
  - Rales [Unknown]
  - Chronic kidney disease [Unknown]
  - Electrocardiogram Q wave abnormal [Unknown]
  - Hyperlipidaemia [Unknown]
  - Rales [Unknown]
  - Heart failure with reduced ejection fraction [Unknown]
  - Coronary artery stenosis [Unknown]
  - Electrocardiogram QT prolonged [Unknown]
  - Bundle branch block left [Unknown]
  - Anaemia macrocytic [Unknown]
  - Ventricular arrhythmia [Unknown]
  - Hypotension [Unknown]
  - Syncope [Unknown]
  - Ventricular tachycardia [Unknown]
  - Supraventricular tachycardia [Unknown]
  - Cardiomegaly [Unknown]
  - Intestinal obstruction [Unknown]
  - Left ventricular dysfunction [Unknown]
  - Fatigue [Unknown]
  - Mitral valve incompetence [Unknown]
  - Ventricular tachycardia [Unknown]
  - Anaemia macrocytic [Unknown]
  - Diastolic dysfunction [Unknown]
  - Syncope [Unknown]
  - Rales [Unknown]
  - Ejection fraction decreased [Unknown]
  - Ill-defined disorder [Unknown]
  - Physical examination abnormal [Unknown]
  - Rales [Unknown]
  - Echocardiogram abnormal [Unknown]
  - Stenosis [Unknown]
  - Cardiac discomfort [Unknown]
  - Pulmonary valve disease [Unknown]
  - Mitral valve disease [Unknown]
  - Joint swelling [Unknown]
  - Skin lesion [Unknown]
  - Pericardial disease [Unknown]
  - Ejection fraction decreased [Unknown]
  - Anaemia macrocytic [Unknown]
  - Joint swelling [Unknown]
  - Cardiomegaly [Unknown]

NARRATIVE: CASE EVENT DATE: 20190918
